FAERS Safety Report 12396097 (Version 1)
Quarter: 2016Q2

REPORT INFORMATION
  Report Type: Spontaneous
  Country: CN (occurrence: CN)
  Receive Date: 20160524
  Receipt Date: 20160524
  Transmission Date: 20160815
  Serious: Yes (Other)
  Sender: FDA-Public Use
  Company Number: CN-ASTRAZENECA-2016SE48943

PATIENT
  Age: 40 Year
  Sex: Female

DRUGS (5)
  1. ZOLADEX [Suspect]
     Active Substance: GOSERELIN ACETATE
     Indication: BREAST CANCER FEMALE
     Route: 058
     Dates: start: 2011, end: 2015
  2. TAMOXIFEN [Concomitant]
     Active Substance: TAMOXIFEN
     Dosage: ONE TABLET TWO TIMES A DAY
     Route: 048
  3. THYMOSIN [Concomitant]
     Active Substance: THYMOSIN
  4. CHINESE PATENT MEDICINES [Concomitant]
  5. TAMOXIFEN [Concomitant]
     Active Substance: TAMOXIFEN
     Dosage: ONE TABLET EVERY DAY
     Route: 048

REACTIONS (4)
  - Metrorrhagia [Recovered/Resolved]
  - Metastasis [Unknown]
  - Endometrial thickening [Unknown]
  - Therapy cessation [Unknown]

NARRATIVE: CASE EVENT DATE: 201603
